FAERS Safety Report 5017127-6 (Version None)
Quarter: 2006Q2

REPORT INFORMATION
  Report Type: 
  Country: None (occurrence: None)
  Receive Date: 20060525
  Receipt Date: 20060518
  Transmission Date: 20061013
  Serious: Yes (Life-Threatening, Hospitalization, Disabling)
  Sender: FDA-Public Use
  Company Number: 2006-04-0370

PATIENT
  Age: 65 Year
  Sex: Male
  Weight: 107.9561 kg

DRUGS (13)
  1. TEMODAR [Suspect]
     Indication: GLIOBLASTOMA MULTIFORME
     Dosage: 170 MG QD ORAL
     Route: 048
     Dates: start: 20060301, end: 20060330
  2. LIPITOR [Concomitant]
  3. GUAIFENEX LA [Concomitant]
  4. HEPARIN [Concomitant]
  5. PREVACID [Concomitant]
  6. COLCHICINE [Concomitant]
  7. DEXAMETHASONE TAB [Concomitant]
  8. PHENYTOIN [Concomitant]
  9. VANCOMYCIN [Concomitant]
  10. TOBRAMYCIN [Concomitant]
  11. DOXYCYCLINE [Concomitant]
  12. VORICONAZOLE [Concomitant]
  13. ZOSYN [Concomitant]

REACTIONS (7)
  - APRAXIA [None]
  - CONVULSION [None]
  - DEMENTIA [None]
  - MYOCLONUS [None]
  - NEOPLASM PROGRESSION [None]
  - PYREXIA [None]
  - TREMOR [None]
